FAERS Safety Report 6771643-5 (Version None)
Quarter: 2010Q2

REPORT INFORMATION
  Report Type: 
  Country: None (occurrence: None)
  Receive Date: 20100611
  Receipt Date: 20100531
  Transmission Date: 20101027
  Serious: Yes (Other)
  Sender: FDA-Public Use
  Company Number: B0659697A

PATIENT
  Age: 31 Year
  Sex: Male

DRUGS (5)
  1. ABACAVIR SULFATE [Suspect]
     Indication: HIV INFECTION
  2. COTRIM [Concomitant]
  3. EFAVIRENZ [Concomitant]
  4. LOPINAVIR/RITONAVIR [Concomitant]
  5. STAVUDINE [Concomitant]

REACTIONS (5)
  - AGRANULOCYTOSIS [None]
  - CHILLS [None]
  - HEADACHE [None]
  - PYREXIA [None]
  - RASH MACULO-PAPULAR [None]
